FAERS Safety Report 6159524-1 (Version None)
Quarter: 2009Q2

REPORT INFORMATION
  Report Type: 
  Country: None (occurrence: None)
  Receive Date: 20090420
  Receipt Date: 20081008
  Transmission Date: 20091009
  Serious: No
  Sender: FDA-Public Use
  Company Number: US-ABBOTT-08P-163-0480570-00

PATIENT
  Sex: Female

DRUGS (5)
  1. LUPRON DEPOT-PED [Suspect]
     Indication: PRECOCIOUS PUBERTY
     Route: 030
     Dates: start: 19910101, end: 19940101
  2. METHYLPHENIDATE HCL [Concomitant]
     Indication: ATTENTION DEFICIT/HYPERACTIVITY DISORDER
  3. SPIRONOLACTONE [Concomitant]
     Indication: HAIR GROWTH ABNORMAL
  4. ROSIGLITAZONE [Concomitant]
     Indication: DRUG USE FOR UNKNOWN INDICATION
  5. GLUMTZA [Concomitant]
     Indication: INSULIN RESISTANCE

REACTIONS (2)
  - AMENORRHOEA [None]
  - POLYCYSTIC OVARIES [None]
